FAERS Safety Report 7222624-9 (Version None)
Quarter: 2011Q1

REPORT INFORMATION
  Report Type: 
  Country: None (occurrence: None)
  Receive Date: 20110103
  Receipt Date: 20101222
  Transmission Date: 20110831
  Serious: Yes (Life-Threatening, Hospitalization, Other)
  Sender: FDA-Public Use
  Company Number: 2010MA001857

PATIENT
  Age: 75 Year
  Sex: Female

DRUGS (10)
  1. FRAGMIN [Concomitant]
  2. ACICLOVIR [Concomitant]
  3. COTRIM [Concomitant]
  4. RANITIDINE [Concomitant]
  5. BENDROFLUMETHIAZIDE (BENDROFLUMETHIAZIDE) [Suspect]
     Indication: HYPERTENSION
     Dosage: PO
     Route: 048
  6. REVLIMID [Suspect]
     Indication: MULTIPLE MYELOMA
     Dosage: PO
     Route: 048
     Dates: start: 20100630, end: 20100715
  7. ALLOPURINOL [Concomitant]
  8. VELCADE [Concomitant]
  9. TRAMADOL HYDROCHLORIDE [Suspect]
     Indication: PAIN
     Dosage: 100 MG QID, PO
     Route: 048
  10. DEXAMETHASONE [Concomitant]

REACTIONS (2)
  - DRUG INTERACTION [None]
  - INAPPROPRIATE ANTIDIURETIC HORMONE SECRETION [None]
